FAERS Safety Report 25163870 (Version 1)
Quarter: 2025Q2

REPORT INFORMATION
  Report Type: Spontaneous
  Country: DE (occurrence: DE)
  Receive Date: 20250405
  Receipt Date: 20250405
  Transmission Date: 20250717
  Serious: Yes (Death, Hospitalization, Other)
  Sender: AUROBINDO
  Company Number: DE-BRISTOL-MYERS SQUIBB COMPANY-2024-054398

PATIENT
  Age: 57 Year
  Sex: Female
  Weight: 51 kg

DRUGS (32)
  1. OXALIPLATIN [Suspect]
     Active Substance: OXALIPLATIN
     Indication: Oesophageal squamous cell carcinoma
     Route: 042
     Dates: start: 20231220, end: 20240124
  2. OPDIVO [Suspect]
     Active Substance: NIVOLUMAB
     Indication: Oesophageal squamous cell carcinoma
     Route: 042
     Dates: start: 20231220, end: 20240124
  3. FLUOROURACIL [Suspect]
     Active Substance: FLUOROURACIL
     Indication: Oesophageal squamous cell carcinoma
     Route: 042
     Dates: start: 20231220, end: 20240124
  4. LEUCOVORIN [Concomitant]
     Active Substance: LEUCOVORIN\LEUCOVORIN CALCIUM
     Indication: Product used for unknown indication
     Route: 042
     Dates: start: 20231220, end: 20240124
  5. Nutrison multifibre [Concomitant]
     Indication: Product used for unknown indication
     Route: 065
     Dates: start: 20231214
  6. SCOPOLAMINE [Concomitant]
     Active Substance: SCOPOLAMINE
     Indication: Prophylaxis
     Route: 062
     Dates: start: 20231220
  7. ALBUTEROL [Concomitant]
     Active Substance: ALBUTEROL
     Indication: Product used for unknown indication
     Route: 065
     Dates: start: 20240117
  8. Emser sole [Concomitant]
     Indication: Prophylaxis
     Dates: start: 20231220
  9. ENOXAPARIN [Concomitant]
     Active Substance: ENOXAPARIN
     Indication: Prophylaxis
     Dosage: 40 MILLIGRAM, ONCE A DAY
     Route: 058
     Dates: start: 20231219
  10. CODEINE [Concomitant]
     Active Substance: CODEINE
     Indication: Prophylaxis
     Route: 048
     Dates: start: 20231221
  11. Akynzeo [Concomitant]
     Indication: Prophylaxis
     Route: 042
     Dates: start: 20231220, end: 20240124
  12. PANTOPRAZOLE SODIUM [Concomitant]
     Active Substance: PANTOPRAZOLE SODIUM
     Indication: Prophylaxis
     Route: 042
     Dates: start: 20231201
  13. ONDANSETRON [Concomitant]
     Active Substance: ONDANSETRON
     Indication: Prophylaxis
     Route: 042
     Dates: start: 20231219
  14. METAMIZOL [Concomitant]
     Active Substance: METAMIZOLE SODIUM
     Indication: Product used for unknown indication
     Route: 042
     Dates: start: 20231221
  15. IPRATROPIUM [Concomitant]
     Active Substance: IPRATROPIUM
     Indication: Product used for unknown indication
     Dates: start: 20240117
  16. MORPHINE [Concomitant]
     Active Substance: MORPHINE
     Indication: Product used for unknown indication
     Route: 058
     Dates: start: 20240117
  17. ESOMEPRAZOLE [Concomitant]
     Active Substance: ESOMEPRAZOLE
     Indication: Prophylaxis
     Route: 048
     Dates: start: 20240119
  18. BRICANYL [Concomitant]
     Active Substance: TERBUTALINE SULFATE
     Indication: Product used for unknown indication
     Route: 058
     Dates: start: 20240118
  19. AMPICILLIN [Concomitant]
     Active Substance: AMPICILLIN
     Indication: Product used for unknown indication
     Route: 042
     Dates: start: 20240119, end: 20240125
  20. SULBACTAM [Concomitant]
     Active Substance: SULBACTAM
     Indication: Product used for unknown indication
     Route: 042
     Dates: start: 20240119, end: 20240125
  21. METOCLOPRAMIDE [Concomitant]
     Active Substance: METOCLOPRAMIDE
     Indication: Prophylaxis
     Route: 042
     Dates: start: 20240126
  22. AMPHO-MORONAL [Concomitant]
     Active Substance: AMPHOTERICIN B
     Indication: Product used for unknown indication
     Route: 065
     Dates: start: 20231220
  23. BUPRENORPHINE [Concomitant]
     Active Substance: BUPRENORPHINE
     Indication: Product used for unknown indication
     Route: 058
     Dates: start: 20231222
  24. PIRITRAMIDE [Concomitant]
     Active Substance: PIRITRAMIDE
     Indication: Product used for unknown indication
     Route: 042
     Dates: start: 20240121
  25. DEXAMETHASONE [Concomitant]
     Active Substance: DEXAMETHASONE
     Indication: Product used for unknown indication
     Route: 048
     Dates: start: 20240129
  26. MIRTAZAPINE [Concomitant]
     Active Substance: MIRTAZAPINE
     Indication: Product used for unknown indication
     Route: 048
     Dates: start: 20240207
  27. DIMENHYDRINATE [Concomitant]
     Active Substance: DIMENHYDRINATE
     Indication: Prophylaxis
     Route: 048
     Dates: start: 20240211
  28. AMITRIPTYLINE [Concomitant]
     Active Substance: AMITRIPTYLINE
     Indication: Product used for unknown indication
     Route: 048
     Dates: start: 20240208
  29. METAMIZOLE [Concomitant]
     Active Substance: METAMIZOLE
     Indication: Product used for unknown indication
     Route: 048
     Dates: start: 20240212
  30. IBUPROFEN [Concomitant]
     Active Substance: IBUPROFEN
     Indication: Product used for unknown indication
     Route: 048
     Dates: start: 20240302
  31. LORAZEPAM [Concomitant]
     Active Substance: LORAZEPAM
     Indication: Product used for unknown indication
     Route: 048
     Dates: start: 20240302
  32. MELPERONE [Concomitant]
     Active Substance: MELPERONE
     Indication: Product used for unknown indication
     Route: 048
     Dates: start: 20240303

REACTIONS (6)
  - Malignant neoplasm progression [Fatal]
  - Drug ineffective [Fatal]
  - Pneumonia streptococcal [Recovered/Resolved]
  - Pneumonia [Recovered/Resolved]
  - Headache [Unknown]
  - Panic attack [Unknown]

NARRATIVE: CASE EVENT DATE: 20240117
